FAERS Safety Report 7599164-0 (Version None)
Quarter: 2011Q3

REPORT INFORMATION
  Report Type: 
  Country: None (occurrence: None)
  Receive Date: 20110711
  Receipt Date: 20110627
  Transmission Date: 20111222
  Serious: Yes (Hospitalization, Other)
  Sender: FDA-Public Use
  Company Number: US-BAYER-2011-021241

PATIENT
  Age: 32 Year
  Sex: Female
  Weight: 104 kg

DRUGS (8)
  1. PROTONIX [Concomitant]
     Indication: DYSPEPSIA
     Dosage: UNK UNK, CONT
  2. PROZAC [Concomitant]
     Indication: DEPRESSION
     Dosage: 40 MG, QD
     Dates: end: 20100401
  3. ZYPREXA [Concomitant]
     Indication: DEPRESSION
     Dosage: 10 MG, QD
     Dates: start: 20070101, end: 20100101
  4. REQUIP [Concomitant]
     Dosage: 2 MG, QD
  5. LIPITOR [Concomitant]
     Indication: BLOOD CHOLESTEROL INCREASED
     Dosage: 40 MG, QD
     Dates: start: 20080101, end: 20100101
  6. TRAMADOL HCL [Concomitant]
     Indication: PAIN
  7. YAZ [Suspect]
     Indication: CONTRACEPTION
     Dosage: UNK
     Dates: start: 20080501, end: 20090301
  8. NEXIUM [Concomitant]
     Indication: DYSPEPSIA

REACTIONS (6)
  - PULMONARY EMBOLISM [None]
  - PAIN IN EXTREMITY [None]
  - DYSPNOEA [None]
  - PAIN [None]
  - CHEST PAIN [None]
  - DEEP VEIN THROMBOSIS [None]
